FAERS Safety Report 4837767-4 (Version None)
Quarter: 2005Q4

REPORT INFORMATION
  Report Type: 
  Country: None (occurrence: None)
  Receive Date: 20051024
  Receipt Date: 20050707
  Transmission Date: 20060501
  Serious: No
  Sender: FDA-Public Use
  Company Number: 215537

PATIENT
  Age: 58 Year
  Sex: Male

DRUGS (8)
  1. XOLAIR [Suspect]
     Indication: DRUG USE FOR UNKNOWN INDICATION
     Dosage: SUBCUTANEOUS
     Route: 058
  2. ASPIRIN [Concomitant]
  3. PLAVIX [Concomitant]
  4. LOPRESSOR [Concomitant]
  5. REMERON [Concomitant]
  6. TRICOR [Concomitant]
  7. ZETIA [Concomitant]
  8. NEXIUM [Concomitant]

REACTIONS (1)
  - LIVER FUNCTION TEST ABNORMAL [None]
